FAERS Safety Report 9029316 (Version 1)
Quarter: 2013Q1

REPORT INFORMATION
  Report Type: Spontaneous
  Country: FR (occurrence: FR)
  Receive Date: 20130124
  Receipt Date: 20130124
  Transmission Date: 20140127
  Serious: Yes (Hospitalization, Other)
  Sender: FDA-Public Use
  Company Number: FR-PFIZER INC-2013025322

PATIENT
  Age: 84 Year
  Sex: Male

DRUGS (6)
  1. XANAX [Suspect]
     Dosage: 0.125 MG, 3X/DAY
     Route: 048
     Dates: start: 20120926, end: 20121010
  2. VALDOXAN [Suspect]
     Indication: DEPRESSION
     Dosage: 25 MG, 1X/DAY
     Route: 048
     Dates: start: 20120926, end: 20121005
  3. MOCLAMINE [Suspect]
     Dosage: 150 MG, 2X/DAY
     Route: 048
     Dates: start: 20120905, end: 20121010
  4. DEROXAT [Suspect]
     Dosage: 20 MG, 1X/DAY
     Route: 048
     Dates: start: 20121008, end: 20121008
  5. MOPRAL [Concomitant]
     Dosage: 1 DF, 1X/DAY
  6. VOLTARENE [Concomitant]
     Dosage: 50 MG, TWO TABLETS A DAY
     Route: 048

REACTIONS (17)
  - Depression [Recovered/Resolved]
  - Confusional state [Recovered/Resolved]
  - Abnormal behaviour [Recovered/Resolved]
  - Hallucinations, mixed [Recovered/Resolved]
  - Suicide attempt [Recovered/Resolved]
  - Rib fracture [Recovered/Resolved]
  - Leukocytosis [Recovered/Resolved]
  - Encephalopathy [Recovered/Resolved]
  - Somnolence [Recovered/Resolved]
  - Fall [Recovered/Resolved]
  - Face injury [Recovered/Resolved]
  - Vomiting [Recovered/Resolved]
  - Urine analysis abnormal [Recovered/Resolved]
  - Speech disorder [Recovered/Resolved]
  - Disorientation [Recovered/Resolved]
  - Repetitive speech [Recovered/Resolved]
  - Agitation [Recovered/Resolved]
